FAERS Safety Report 5575786-3 (Version None)
Quarter: 2007Q4

REPORT INFORMATION
  Report Type: 
  Country: None (occurrence: None)
  Receive Date: 20071226
  Receipt Date: 20071211
  Transmission Date: 20080405
  Serious: Yes (Hospitalization, Other)
  Sender: FDA-Public Use
  Company Number: DSU-2007-00850

PATIENT
  Age: 16 Year
  Sex: Female
  Weight: 56.9 kg

DRUGS (2)
  1. WELCHOL [Suspect]
     Indication: HYPERCHOLESTEROLAEMIA
     Dosage: (BID), PER ORAL
     Route: 048
     Dates: start: 20070712
  2. ESTRADIOL [Concomitant]

REACTIONS (3)
  - EPSTEIN-BARR VIRUS ANTIBODY POSITIVE [None]
  - PETECHIAE [None]
  - THROMBOCYTOPENIA [None]
